FAERS Safety Report 7326207-1 (Version None)
Quarter: 2011Q1

REPORT INFORMATION
  Report Type: 
  Country: None (occurrence: None)
  Receive Date: 20110302
  Receipt Date: 20110222
  Transmission Date: 20110831
  Serious: Yes (Hospitalization)
  Sender: FDA-Public Use
  Company Number: A0790820A

PATIENT
  Age: 72 Year
  Sex: Female
  Weight: 68.2 kg

DRUGS (6)
  1. LIPITOR [Concomitant]
  2. SYNTHROID [Concomitant]
  3. TOPROL-XL [Concomitant]
  4. GLUCOPHAGE [Concomitant]
  5. AVANDIA [Suspect]
     Dosage: 8MG PER DAY
     Route: 048
     Dates: start: 20020101, end: 20070501
  6. DIOVAN HCT [Concomitant]

REACTIONS (3)
  - CORONARY ARTERY DISEASE [None]
  - ACUTE MYOCARDIAL INFARCTION [None]
  - CEREBROVASCULAR DISORDER [None]
